FAERS Safety Report 5044019-9 (Version None)
Quarter: 2006Q3

REPORT INFORMATION
  Report Type: 
  Country: None (occurrence: None)
  Receive Date: 20060706
  Receipt Date: 20060628
  Transmission Date: 20061208
  Serious: Yes (Hospitalization)
  Sender: FDA-Public Use
  Company Number: JP-AVENTIS-200612003JP

PATIENT

DRUGS (2)
  1. TAXOTERE [Suspect]
     Route: 041
  2. CISPLATIN [Concomitant]

REACTIONS (1)
  - MESENTERIC ARTERY THROMBOSIS [None]
